FAERS Safety Report 6702127-8 (Version None)
Quarter: 2010Q2

REPORT INFORMATION
  Report Type: 
  Country: None (occurrence: None)
  Receive Date: 20100429
  Receipt Date: 20100421
  Transmission Date: 20101027
  Serious: Yes (Hospitalization)
  Sender: FDA-Public Use
  Company Number: CN-GENENTECH-300772

PATIENT
  Sex: Male
  Weight: 65 kg

DRUGS (19)
  1. RITUXIMAB [Suspect]
     Indication: DIFFUSE LARGE B-CELL LYMPHOMA
     Dosage: 641 MG, UNK
     Route: 042
     Dates: start: 20091109
  2. BLINDED BEVACIZUMAB [Suspect]
     Dosage: 900 MG, UNK
     Route: 042
     Dates: start: 20091109
  3. CYCLOPHOSPHAMIDE [Suspect]
     Dosage: 900 MG, UNK
     Route: 042
     Dates: start: 20091109
  4. DOXORUBICIN HCL [Suspect]
     Dosage: 900 MG, UNK
     Route: 042
     Dates: start: 20091109
  5. BLINDED PLACEBO [Suspect]
     Dosage: 900 MG, UNK
     Route: 042
     Dates: start: 20091109
  6. BLINDED PREDNISONE [Suspect]
     Dosage: 900 MG, UNK
     Route: 042
     Dates: start: 20091109
  7. BLINDED RITUXIMAB [Suspect]
     Dosage: 900 MG, UNK
     Route: 042
     Dates: start: 20091109
  8. VINCRISTINE [Suspect]
     Dosage: 900 MG, UNK
     Route: 042
     Dates: start: 20091109
  9. BLINDED BEVACIZUMAB [Suspect]
     Dosage: 990 MG, UNK
     Route: 042
  10. CYCLOPHOSPHAMIDE [Suspect]
     Dosage: 990 MG, UNK
     Route: 042
  11. DOXORUBICIN HCL [Suspect]
     Dosage: 990 MG, UNK
     Route: 042
  12. BLINDED PLACEBO [Suspect]
     Dosage: 990 MG, UNK
     Route: 042
  13. BLINDED PREDNISONE [Suspect]
     Dosage: 990 MG, UNK
     Route: 042
  14. BLINDED RITUXIMAB [Suspect]
     Dosage: 990 MG, UNK
     Route: 042
  15. VINCRISTINE [Suspect]
     Dosage: 990 MG, UNK
     Route: 042
  16. CYCLOPHOSPHAMIDE [Suspect]
     Indication: DIFFUSE LARGE B-CELL LYMPHOMA
     Dosage: 1282 MG, UNK
     Route: 042
     Dates: start: 20090109
  17. PREDNISONE [Suspect]
     Indication: DIFFUSE LARGE B-CELL LYMPHOMA
     Dosage: 100 MG, UNK
     Route: 048
  18. VINCRISTINE [Suspect]
     Indication: DIFFUSE LARGE B-CELL LYMPHOMA
     Dosage: 2 MG, UNK
     Route: 042
  19. DOXORUBICIN HCL [Suspect]
     Indication: DIFFUSE LARGE B-CELL LYMPHOMA
     Dosage: 85.47 MG, UNK
     Route: 042
     Dates: start: 20091109

REACTIONS (1)
  - PLEURAL EFFUSION [None]
